FAERS Safety Report 7025298-5 (Version None)
Quarter: 2010Q4

REPORT INFORMATION
  Report Type: 
  Country: None (occurrence: None)
  Receive Date: 20101001
  Receipt Date: 20100922
  Transmission Date: 20110411
  Serious: Yes (Hospitalization)
  Sender: FDA-Public Use
  Company Number: US-US-EMD SERONO, INC.-7017786

PATIENT
  Sex: Female

DRUGS (1)
  1. REBIF [Suspect]
     Indication: MULTIPLE SCLEROSIS
     Route: 058
     Dates: start: 20070926

REACTIONS (4)
  - DEPRESSION [None]
  - MULTIPLE SCLEROSIS RELAPSE [None]
  - PARANOIA [None]
  - WRONG DRUG ADMINISTERED [None]
